FAERS Safety Report 15924234 (Version 2)
Quarter: 2019Q1

REPORT INFORMATION
  Report Type: Spontaneous
  Country: US (occurrence: US)
  Receive Date: 20190205
  Receipt Date: 20190219
  Transmission Date: 20190417
  Serious: No
  Sender: FDA-Public Use
  Company Number: US-ALLERGAN-1828726US

PATIENT
  Sex: Female

DRUGS (1)
  1. BOTOX COSMETIC [Suspect]
     Active Substance: ONABOTULINUMTOXINA
     Indication: SKIN WRINKLING
     Dosage: APPROXIMATELY 15 UNITS, SINGLE
     Route: 030
     Dates: start: 20180529, end: 20180529

REACTIONS (2)
  - Facial asymmetry [Not Recovered/Not Resolved]
  - Eyelid ptosis [Not Recovered/Not Resolved]
